FAERS Safety Report 20748554 (Version 2)
Quarter: 2022Q2

REPORT INFORMATION
  Report Type: Spontaneous
  Country: JP (occurrence: JP)
  Receive Date: 20220426
  Receipt Date: 20220614
  Transmission Date: 20220721
  Serious: Yes (Life-Threatening, Hospitalization, Disabling)
  Sender: FDA-Public Use
  Company Number: JP-BAYER-2022A058732

PATIENT
  Age: 83 Year
  Sex: Female

DRUGS (8)
  1. RIVAROXABAN [Suspect]
     Active Substance: RIVAROXABAN
     Indication: Thrombosis prophylaxis
     Dosage: DAILY DOSE 15 MG
     Route: 048
     Dates: start: 20220317, end: 20220317
  2. ASPIRIN [Interacting]
     Active Substance: ASPIRIN
     Indication: Angina pectoris
     Dosage: DAILY DOSE 100 MG
     Route: 048
     Dates: start: 2010, end: 20220306
  3. WARFARIN POTASSIUM [Interacting]
     Active Substance: WARFARIN POTASSIUM
     Indication: Atrial fibrillation
     Dosage: DAILY DOSE 1 MG
     Route: 048
     Dates: end: 20220306
  4. ISOSORBIDE DINITRATE [Concomitant]
     Active Substance: ISOSORBIDE DINITRATE
     Indication: Angina pectoris
     Dosage: 20 MG, BID
     Dates: end: 20220317
  5. AMLODIPINE [Concomitant]
     Active Substance: AMLODIPINE BESYLATE
     Indication: Hypertension
     Dosage: DAILY DOSE 5 MG, MORNING
     Dates: end: 20220317
  6. TELMISARTAN [Concomitant]
     Active Substance: TELMISARTAN
     Indication: Hypertension
     Dosage: DAILY DOSE 40 MG, MORNING
     Dates: end: 20220317
  7. RIVOTRIL [Concomitant]
     Active Substance: CLONAZEPAM
     Indication: Restlessness
     Dosage: DAILY DOSE 0.5 MG AFTER LUNCH
     Dates: start: 20220308, end: 20220317
  8. HERBALS [Concomitant]
     Active Substance: HERBALS
     Indication: Restlessness
     Dosage: 2.5 G, TID
     Dates: start: 20220308, end: 20220317

REACTIONS (8)
  - Subdural haematoma [Not Recovered/Not Resolved]
  - Labelled drug-drug interaction medication error [Not Recovered/Not Resolved]
  - Subdural haematoma [Recovered/Resolved with Sequelae]
  - Fall [Unknown]
  - Disturbance in attention [Unknown]
  - Mental impairment [Recovered/Resolved with Sequelae]
  - Depressed level of consciousness [Recovered/Resolved with Sequelae]
  - Somnolence [Recovered/Resolved with Sequelae]

NARRATIVE: CASE EVENT DATE: 20220306
